FAERS Safety Report 15546685 (Version 1)
Quarter: 2018Q4

REPORT INFORMATION
  Report Type: Spontaneous
  Country: GB (occurrence: GB)
  Receive Date: 20181024
  Receipt Date: 20181024
  Transmission Date: 20190205
  Serious: Yes (Disabling)
  Sender: FDA-Public Use
  Company Number: None

PATIENT
  Age: 9 Year
  Sex: Female
  Weight: 32.85 kg

DRUGS (5)
  1. KEPPRA [Concomitant]
     Active Substance: LEVETIRACETAM
  2. MELATONIN [Concomitant]
     Active Substance: MELATONIN
  3. PROMETHAZINE [Concomitant]
     Active Substance: PROMETHAZINE\PROMETHAZINE HYDROCHLORIDE
  4. MOVICOL [Concomitant]
     Active Substance: POLYETHYLENE GLYCOL 3350\POTASSIUM CHLORIDE\SODIUM BICARBONATE\SODIUM CHLORIDE
  5. CARBEMAZEPINE [Suspect]
     Active Substance: CARBAMAZEPINE
     Indication: PARTIAL SEIZURES
     Dates: start: 20120103, end: 20151001

REACTIONS (8)
  - Drug ineffective [None]
  - Psychotic disorder [None]
  - Abnormal behaviour [None]
  - Amnesia [None]
  - Status epilepticus [None]
  - Loss of personal independence in daily activities [None]
  - Diplopia [None]
  - Sudden onset of sleep [None]

NARRATIVE: CASE EVENT DATE: 20160106
